FAERS Safety Report 9286833 (Version 1)
Quarter: 2013Q2

REPORT INFORMATION
  Report Type: Spontaneous
  Country: US (occurrence: None)
  Receive Date: 20130509
  Receipt Date: 20130509
  Transmission Date: 20140414
  Serious: Yes (Other)
  Sender: FDA-Public Use
  Company Number: SYM-2013-03499

PATIENT
  Age: 29 Year
  Sex: Female

DRUGS (1)
  1. RETIN-A [Suspect]
     Indication: ACNE
     Dosage: AS REQUIRED, TOPICAL
     Route: 061
     Dates: start: 2012, end: 201301

REACTIONS (3)
  - Pre-eclampsia [None]
  - Exposure during pregnancy [None]
  - Expired drug administered [None]
